FAERS Safety Report 6280581-6 (Version None)
Quarter: 2009Q3

REPORT INFORMATION
  Report Type: 
  Country: None (occurrence: None)
  Receive Date: 20090724
  Receipt Date: 20080904
  Transmission Date: 20100115
  Serious: No
  Sender: FDA-Public Use
  Company Number: A0747125A

PATIENT
  Age: 64 Year
  Sex: Male
  Weight: 71.8 kg

DRUGS (3)
  1. AVANDIA [Suspect]
     Dosage: 4MG PER DAY
     Route: 048
     Dates: start: 20050101, end: 20060101
  2. METFORMIN HCL [Concomitant]
     Dates: start: 20050101, end: 20080101
  3. AMARYL [Concomitant]
     Dates: start: 20050101, end: 20080101

REACTIONS (4)
  - CARDIAC DISORDER [None]
  - CHEST PAIN [None]
  - PAIN [None]
  - VISION BLURRED [None]
